FAERS Safety Report 10987585 (Version 2)
Quarter: 2015Q2

REPORT INFORMATION
  Report Type: Spontaneous
  Country: US (occurrence: US)
  Receive Date: 20150404
  Receipt Date: 20150525
  Transmission Date: 20150821
  Serious: No
  Sender: FDA-Public Use
  Company Number: US-JNJFOC-20140515540

PATIENT

DRUGS (2)
  1. INFLIXIMAB, RECOMBINANT [Suspect]
     Active Substance: INFLIXIMAB
     Indication: STEM CELL TRANSPLANT
     Route: 042
  2. CORTICOSTEROIDS [Concomitant]
     Active Substance: CORTICOSTEROID NOS
     Route: 065

REACTIONS (3)
  - Product use issue [Unknown]
  - Infusion related reaction [Recovered/Resolved]
  - Rash [Recovered/Resolved]
